FAERS Safety Report 8596791-9 (Version None)
Quarter: 2012Q3

REPORT INFORMATION
  Report Type: 
  Country: None (occurrence: None)
  Receive Date: 20120815
  Receipt Date: 20120801
  Transmission Date: 20120928
  Serious: Yes (Hospitalization)
  Sender: FDA-Public Use
  Company Number: JP-FRI-1000037224

PATIENT
  Sex: Female

DRUGS (13)
  1. MEMANTINE HCL [Suspect]
     Indication: DEMENTIA ALZHEIMER'S TYPE
     Dosage: 5 MG
     Route: 048
  2. MENITAZINE [Concomitant]
     Indication: CEREBRAL INFARCTION
     Dosage: 20 MG
     Route: 048
     Dates: start: 20120604
  3. NICERGOLINE [Concomitant]
     Indication: CEREBRAL INFARCTION
     Dosage: 45 MG
     Route: 048
     Dates: start: 20110106
  4. DESYREL [Concomitant]
     Indication: CEREBRAL INFARCTION
     Dosage: 225 MG
     Route: 048
     Dates: start: 20120515
  5. EPADEL S [Concomitant]
     Indication: CEREBRAL INFARCTION
     Dosage: 3600 MG
     Route: 048
     Dates: start: 20110106
  6. MEMANTINE HCL [Suspect]
     Dosage: 10 MG
     Route: 048
  7. ACTOS [Concomitant]
     Indication: DIABETES MELLITUS
     Dosage: 15 MG
     Dates: start: 20110106
  8. ARICEPT [Concomitant]
     Indication: DEMENTIA ALZHEIMER'S TYPE
     Dosage: 5 MG
     Dates: start: 20120616
  9. MAGMITT [Concomitant]
     Indication: CONSTIPATION
     Dosage: 2970 MG
     Route: 048
     Dates: start: 20110106
  10. MEMANTINE HCL [Suspect]
     Dosage: 20 MG
     Route: 048
     Dates: start: 20120507, end: 20120709
  11. CLARITHROMYCIN [Concomitant]
     Indication: BRONCHITIS CHRONIC
     Dosage: 200 MG
     Dates: start: 20110106
  12. KETAS [Concomitant]
     Indication: CEREBRAL INFARCTION
     Dosage: 90 MG
     Route: 048
     Dates: start: 20110106
  13. MEMANTINE HCL [Suspect]
     Dosage: 15 MG
     Route: 048
     Dates: end: 20120506

REACTIONS (4)
  - RESPIRATORY ARREST [None]
  - LOSS OF CONSCIOUSNESS [None]
  - TRANSIENT ISCHAEMIC ATTACK [None]
  - ALTERED STATE OF CONSCIOUSNESS [None]
